FAERS Safety Report 20177274 (Version 4)
Quarter: 2022Q1

REPORT INFORMATION
  Report Type: Report from Study
  Country: US (occurrence: US)
  Receive Date: 20211213
  Receipt Date: 20220325
  Transmission Date: 20220424
  Serious: No
  Sender: FDA-Public Use
  Company Number: US-NOVARTISTESTPH-NVSC2021US282526

PATIENT
  Sex: Female

DRUGS (1)
  1. OMNITROPE [Suspect]
     Active Substance: SOMATROPIN
     Indication: Product used for unknown indication
     Dosage: 1.7 MG, QD
     Route: 058
     Dates: start: 20211206

REACTIONS (4)
  - Crying [Unknown]
  - Device leakage [Unknown]
  - Accidental exposure to product [Unknown]
  - Injection site pain [Unknown]
